FAERS Safety Report 22653476 (Version 1)
Quarter: 2023Q2

REPORT INFORMATION
  Report Type: Spontaneous
  Country: US (occurrence: US)
  Receive Date: 20230629
  Receipt Date: 20230629
  Transmission Date: 20230721
  Serious: Yes (Other)
  Sender: FDA-Public Use
  Company Number: US-ASTELLAS-2023US019348

PATIENT
  Age: 57 Year
  Sex: Female

DRUGS (2)
  1. MYRBETRIQ [Interacting]
     Active Substance: MIRABEGRON
     Indication: Product used for unknown indication
     Dosage: 100 MG, UNKNOWN FREQ. (TWICE THE TYPICAL DOSE)
     Route: 065
  2. INGREZZA [Interacting]
     Active Substance: VALBENAZINE
     Indication: Tardive dyskinesia
     Route: 048
     Dates: start: 20220521

REACTIONS (3)
  - Electrocardiogram QT prolonged [Not Recovered/Not Resolved]
  - Drug interaction [Not Recovered/Not Resolved]
  - Overdose [Unknown]

NARRATIVE: CASE EVENT DATE: 20220830
